FAERS Safety Report 4471004-8 (Version None)
Quarter: 2004Q4

REPORT INFORMATION
  Report Type: 
  Country: None (occurrence: None)
  Receive Date: 20041011
  Receipt Date: 20040824
  Transmission Date: 20050328
  Serious: Yes (Other)
  Sender: FDA-Public Use
  Company Number: US-ROCHE-378572

PATIENT
  Age: 33 Year
  Sex: Female

DRUGS (1)
  1. ZENAPAX [Suspect]
     Indication: RETINOPATHY
     Route: 042
     Dates: start: 20040215

REACTIONS (1)
  - COELIAC DISEASE [None]
